FAERS Safety Report 17580967 (Version 2)
Quarter: 2020Q2

REPORT INFORMATION
  Report Type: Spontaneous
  Country: HU (occurrence: HU)
  Receive Date: 20200325
  Receipt Date: 20200409
  Transmission Date: 20200713
  Serious: Yes (Death)
  Sender: FDA-Public Use
  Company Number: HU-CHIESI USA, INC.-HU-2020CHI000162

PATIENT

DRUGS (1)
  1. TOBRAMYCIN. [Suspect]
     Active Substance: TOBRAMYCIN
     Indication: SYSTEMIC INFECTION
     Dosage: UNK
     Route: 042

REACTIONS (2)
  - Substance-induced psychotic disorder [Fatal]
  - Renal failure [Fatal]
